FAERS Safety Report 4539215-0 (Version None)
Quarter: 2004Q4

REPORT INFORMATION
  Report Type: 
  Country: None (occurrence: None)
  Receive Date: 20041227
  Receipt Date: 20041227
  Transmission Date: 20050328
  Serious: Yes (Life-Threatening)
  Sender: FDA-Public Use
  Company Number: None

PATIENT
  Age: 70 Year
  Sex: Male
  Weight: 80.7403 kg

DRUGS (1)
  1. CYPHER AND VISION STENTS [Suspect]
     Dates: start: 20041208

REACTIONS (2)
  - CHEST PAIN [None]
  - STENT OCCLUSION [None]
